FAERS Safety Report 6399698-0 (Version None)
Quarter: 2009Q4

REPORT INFORMATION
  Report Type: 
  Country: None (occurrence: None)
  Receive Date: 20091014
  Receipt Date: 20091008
  Transmission Date: 20100525
  Serious: Yes (Death)
  Sender: FDA-Public Use
  Company Number: TW-ROCHE-661042

PATIENT
  Age: 42 Year
  Sex: Male

DRUGS (1)
  1. TAMIFLU [Suspect]
     Dosage: REPORTED INDICATION: H1N1 INFLUENZA A.
     Route: 048
     Dates: start: 20090930

REACTIONS (1)
  - INFLUENZA [None]
